FAERS Safety Report 21556741 (Version 3)
Quarter: 2023Q1

REPORT INFORMATION
  Report Type: Spontaneous
  Country: US (occurrence: US)
  Receive Date: 20221104
  Receipt Date: 20230120
  Transmission Date: 20230418
  Serious: No
  Sender: FDA-Public Use
  Company Number: US-PFIZER INC-PV202200096949

PATIENT
  Age: 65 Year
  Sex: Female

DRUGS (2)
  1. XELJANZ [Suspect]
     Active Substance: TOFACITINIB CITRATE
     Dosage: 10MG 1 TABLET IN THE MORNING AND 5MG 1 TABLET IN THE EVENING
  2. XELJANZ [Suspect]
     Active Substance: TOFACITINIB CITRATE
     Dosage: 10MG 1 TABLET IN THE MORNING AND 5MG 1 TABLET IN THE AFTERNOON
     Route: 048

REACTIONS (2)
  - Off label use [Unknown]
  - Headache [Unknown]
